FAERS Safety Report 25370013 (Version 1)
Quarter: 2025Q2

REPORT INFORMATION
  Report Type: Spontaneous
  Country: US (occurrence: US)
  Receive Date: 20250528
  Receipt Date: 20250528
  Transmission Date: 20250716
  Serious: Yes (Death)
  Sender: PFIZER
  Company Number: US-PFIZER INC-202500008162

PATIENT
  Age: 70 Year
  Sex: Female

DRUGS (2)
  1. TUKYSA [Suspect]
     Active Substance: TUCATINIB
     Dosage: 2 DF, 2X/DAY
     Dates: start: 202411
  2. TUKYSA [Suspect]
     Active Substance: TUCATINIB
     Dosage: 300 MG, 2X/DAY
     Route: 048
     Dates: end: 202504

REACTIONS (2)
  - Death [Fatal]
  - Off label use [Unknown]

NARRATIVE: CASE EVENT DATE: 20241101
